FAERS Safety Report 21904582 (Version 1)
Quarter: 2023Q1

REPORT INFORMATION
  Report Type: Spontaneous
  Country: FR (occurrence: FR)
  Receive Date: 20230124
  Receipt Date: 20230124
  Transmission Date: 20230417
  Serious: Yes (Hospitalization)
  Sender: FDA-Public Use
  Company Number: None

PATIENT
  Age: 35 Year
  Sex: Male

DRUGS (18)
  1. CLONAZEPAM [Suspect]
     Active Substance: CLONAZEPAM
     Indication: Epilepsy
     Route: 048
     Dates: start: 2001, end: 2008
  2. CLONAZEPAM [Suspect]
     Active Substance: CLONAZEPAM
     Indication: Anxiety disorder
     Route: 048
     Dates: start: 2001, end: 2008
  3. CLONAZEPAM [Suspect]
     Active Substance: CLONAZEPAM
     Indication: Epilepsy
     Dosage: UP TO 25MG/D?DAILY DOSE: 25 MILLIGRAM
     Route: 048
     Dates: start: 2022
  4. CLONAZEPAM [Suspect]
     Active Substance: CLONAZEPAM
     Indication: Anxiety disorder
     Dosage: UP TO 25MG/D?DAILY DOSE: 25 MILLIGRAM
     Route: 048
     Dates: start: 2022
  5. COCAINE [Suspect]
     Active Substance: COCAINE
     Dosage: UP TO 10G/D
     Route: 045
     Dates: start: 2017, end: 2019
  6. COCAINE [Suspect]
     Active Substance: COCAINE
     Dosage: OCCASIONAL
     Route: 045
     Dates: start: 2019
  7. CANNABIS SATIVA SUBSP. INDICA TOP [Suspect]
     Active Substance: CANNABIS SATIVA SUBSP. INDICA TOP
     Dosage: 2 TO 3G/DAY SINCE THE AGE OF 14 ; AT A DOSE OF 3 MG IN THE EVENING
     Route: 055
     Dates: start: 2001
  8. TOBACCO LEAF [Suspect]
     Active Substance: TOBACCO LEAF
     Dosage: SUBUTEX IS INCREASED AGAIN TO 3 MG/DAY.
     Route: 055
  9. LYRICA [Suspect]
     Active Substance: PREGABALIN
     Dosage: UP TO 900MG/D
     Route: 048
     Dates: end: 20220926
  10. ALCOHOL [Suspect]
     Active Substance: ALCOHOL
     Dosage: ALCOHOL CONSUMPTION WEANED OFF SINCE 2020
     Dates: end: 2020
  11. BUPRENORPHINE [Suspect]
     Active Substance: BUPRENORPHINE
     Dosage: 3 MG: 1-0-0?DAILY DOSE: 2.8 MILLIGRAM
  12. BUPRENORPHINE [Suspect]
     Active Substance: BUPRENORPHINE
     Dosage: DAILY DOSE: 2 MILLIGRAM
  13. VALPROATE SODIUM [Suspect]
     Active Substance: VALPROATE SODIUM
     Indication: Epilepsy
     Dates: end: 2017
  14. VALIUM [Suspect]
     Active Substance: DIAZEPAM
     Dosage: DAILY DOSE: 5 MILLIGRAM
  15. VALIUM [Suspect]
     Active Substance: DIAZEPAM
     Dosage: 8 A.M. 11 A.M. 2 P.M. 5 P.M. 8 P.M. 11 P.M?DAILY DOSE: 10 MILLIGRAM
  16. VALIUM [Suspect]
     Active Substance: DIAZEPAM
     Dosage: DAILY DOSE: 60 MILLIGRAM
  17. SERTRALINE [Suspect]
     Active Substance: SERTRALINE HYDROCHLORIDE
     Dosage: DAILY DOSE: 25 MILLIGRAM
  18. GLYCOPYRROLATE [Suspect]
     Active Substance: GLYCOPYRROLATE
     Dosage: 1-0-0

REACTIONS (5)
  - Anxiety [Recovering/Resolving]
  - Chest discomfort [Recovering/Resolving]
  - Drug abuse [Recovering/Resolving]
  - Drug dependence [Recovering/Resolving]
  - Obstructive airways disorder [Recovering/Resolving]

NARRATIVE: CASE EVENT DATE: 20010101
